FAERS Safety Report 21895222 (Version 2)
Quarter: 2023Q1

REPORT INFORMATION
  Report Type: Report from Study
  Country: CA (occurrence: CA)
  Receive Date: 20230123
  Receipt Date: 20230125
  Transmission Date: 20230417
  Serious: No
  Sender: FDA-Public Use
  Company Number: CA-ABBVIE-4277488

PATIENT
  Age: 68 Year
  Sex: Female

DRUGS (1)
  1. SKYRIZI [Suspect]
     Active Substance: RISANKIZUMAB-RZAA
     Indication: Crohn^s disease
     Route: 058
     Dates: start: 20230109

REACTIONS (3)
  - Hepatomegaly [Unknown]
  - Hepatic pain [Recovered/Resolved]
  - Micturition urgency [Unknown]

NARRATIVE: CASE EVENT DATE: 20230101
